FAERS Safety Report 4450146-7 (Version None)
Quarter: 2004Q3

REPORT INFORMATION
  Report Type: 
  Country: None (occurrence: None)
  Receive Date: 20040915
  Receipt Date: 20040913
  Transmission Date: 20050211
  Serious: Yes (Death, Life-Threatening, Hospitalization)
  Sender: FDA-Public Use
  Company Number: DE-BRISTOL-MYERS SQUIBB COMPANY-12700746

PATIENT
  Age: 67 Year
  Sex: Female
  Weight: 70 kg

DRUGS (2)
  1. TAXOL [Suspect]
     Indication: BREAST CANCER METASTATIC
     Dosage: C1: 08-APR-04; C2: NOT REPORTED; C3: 21-MAY-04
     Route: 042
     Dates: start: 20040521, end: 20040521
  2. EPIRUBICIN [Suspect]
     Indication: BREAST CANCER METASTATIC
     Dosage: C1: 08-APR-04; C2: NOT REPORTED; C3: 21-MAY-04
     Route: 042
     Dates: start: 20040521, end: 20040521

REACTIONS (7)
  - APATHY [None]
  - BRADYKINESIA [None]
  - CYANOSIS [None]
  - DEATH [None]
  - DYSPNOEA [None]
  - GENERAL PHYSICAL HEALTH DETERIORATION [None]
  - OEDEMA PERIPHERAL [None]
